FAERS Safety Report 7811052-0 (Version None)
Quarter: 2011Q4

REPORT INFORMATION
  Report Type: 
  Country: None (occurrence: None)
  Receive Date: 20111013
  Receipt Date: 20111007
  Transmission Date: 20120403
  Serious: No
  Sender: FDA-Public Use
  Company Number: US-B.I. PHARMACEUTICALS,INC./RIDGEFIELD-2011-BP-17292BP

PATIENT
  Age: 83 Year
  Sex: Female

DRUGS (7)
  1. AMITRIPTYLINE HCL [Concomitant]
  2. ATENOLOL [Concomitant]
     Indication: HYPERTENSION
  3. CALCIUM D [Concomitant]
  4. STOOL SOFTENERS [Concomitant]
  5. PRADAXA [Suspect]
     Indication: ATRIAL FIBRILLATION
     Dosage: 300 MG
     Route: 048
     Dates: start: 20110606
  6. AVAPRO [Concomitant]
  7. DILTIAZEM HCL [Concomitant]

REACTIONS (4)
  - BLOOD URINE PRESENT [None]
  - HAEMORRHAGE [None]
  - ARTHRALGIA [None]
  - FALL [None]
